FAERS Safety Report 4544280-0 (Version None)
Quarter: 2005Q1

REPORT INFORMATION
  Report Type: 
  Country: None (occurrence: None)
  Receive Date: 20050104
  Receipt Date: 20041224
  Transmission Date: 20050727
  Serious: Yes (Other)
  Sender: FDA-Public Use
  Company Number: FR-ABBOTT-04P-056-0284781-00

PATIENT
  Age: 72 Year
  Sex: Male

DRUGS (3)
  1. LIPANTHYL TABLETS [Suspect]
     Indication: HYPERCHOLESTEROLAEMIA
     Route: 048
     Dates: start: 20041101, end: 20041201
  2. GINKGO TREE LEAVES EXTRACT [Concomitant]
     Indication: MEMORY IMPAIRMENT
  3. PROPRANOLOL HYDROCHLORIDE [Concomitant]
     Indication: DRUG USE FOR UNKNOWN INDICATION

REACTIONS (1)
  - SCIATICA [None]
